FAERS Safety Report 4449645-3 (Version None)
Quarter: 2004Q3

REPORT INFORMATION
  Report Type: 
  Country: None (occurrence: None)
  Receive Date: 20040913
  Receipt Date: 20040827
  Transmission Date: 20050211
  Serious: Yes (Hospitalization, Other)
  Sender: FDA-Public Use
  Company Number: 200588

PATIENT
  Age: 59 Year
  Sex: Female

DRUGS (5)
  1. AVONEX [Suspect]
     Indication: MULTIPLE SCLEROSIS
  2. AVONEX [Suspect]
     Indication: MULTIPLE SCLEROSIS
     Dates: start: 20040701
  3. DITROPAN [Concomitant]
  4. BACLOFEN [Concomitant]
  5. AMBIEN [Concomitant]

REACTIONS (21)
  - AGITATION [None]
  - ALANINE AMINOTRANSFERASE INCREASED [None]
  - ASPARTATE AMINOTRANSFERASE INCREASED [None]
  - BILIARY CIRRHOSIS [None]
  - BLOOD ALKALINE PHOSPHATASE INCREASED [None]
  - BLOOD LACTATE DEHYDROGENASE INCREASED [None]
  - CALCULUS BLADDER [None]
  - COMA [None]
  - DEPRESSION [None]
  - HEPATIC CIRRHOSIS [None]
  - HEPATIC FIBROSIS [None]
  - INFLAMMATION [None]
  - LETHARGY [None]
  - MAJOR DEPRESSION [None]
  - MULTIPLE DRUG OVERDOSE [None]
  - NECROSIS [None]
  - OVERDOSE [None]
  - PYREXIA [None]
  - QUADRIPARESIS [None]
  - SEPSIS [None]
  - URINARY TRACT INFECTION [None]
